FAERS Safety Report 5615153-7 (Version None)
Quarter: 2008Q1

REPORT INFORMATION
  Report Type: 
  Country: None (occurrence: None)
  Receive Date: 20080206
  Receipt Date: 20070828
  Transmission Date: 20080703
  Serious: Yes (Hospitalization)
  Sender: FDA-Public Use
  Company Number: A0677013A

PATIENT

DRUGS (1)
  1. ARIXTRA [Suspect]
     Dosage: 2.5MG UNKNOWN
     Route: 058

REACTIONS (1)
  - THROMBOCYTOPENIA [None]
